FAERS Safety Report 8548911-X (Version None)
Quarter: 2012Q3

REPORT INFORMATION
  Report Type: 
  Country: None (occurrence: None)
  Receive Date: 20120730
  Receipt Date: 20120726
  Transmission Date: 20120928
  Serious: Yes (Hospitalization)
  Sender: FDA-Public Use
  Company Number: PHHO2012AU011005

PATIENT
  Sex: Male
  Weight: 95 kg

DRUGS (3)
  1. NEUPOGEN [Concomitant]
  2. PIPERACILLIN AND TAZOBACTAM [Concomitant]
  3. NEORAL [Suspect]
     Indication: RENAL TRANSPLANT
     Dosage: 225 MG, BID
     Route: 048
     Dates: start: 20120401, end: 20120709

REACTIONS (1)
  - FEBRILE NEUTROPENIA [None]
